FAERS Safety Report 5922122-6 (Version None)
Quarter: 2008Q3

REPORT INFORMATION
  Report Type: 
  Country: None (occurrence: None)
  Receive Date: 20080909
  Receipt Date: 20080701
  Transmission Date: 20090109
  Serious: Yes (Death, Hospitalization)
  Sender: FDA-Public Use
  Company Number: 163-20785-08060580 (0)

PATIENT
  Age: 79 Year
  Sex: Male

DRUGS (6)
  1. THALOMID [Suspect]
     Indication: MULTIPLE MYELOMA
     Dosage: 100 MG, 1 IN 1 D, ORAL : 100 MG, 2 IN 1 D, ORAL
     Route: 048
     Dates: start: 20080125, end: 20080201
  2. THALOMID [Suspect]
     Indication: MULTIPLE MYELOMA
     Dosage: 100 MG, 1 IN 1 D, ORAL : 100 MG, 2 IN 1 D, ORAL
     Route: 048
     Dates: start: 20080226
  3. TOPROL-XL [Concomitant]
  4. COUMADIN [Concomitant]
  5. SODIUM BICARBONATE IN PLASTIC CONTAINER [Concomitant]
  6. LANOXIN [Concomitant]

REACTIONS (4)
  - DEATH [None]
  - HYPOTENSION [None]
  - RENAL FAILURE ACUTE [None]
  - SEPSIS [None]
